FAERS Safety Report 8152185-1 (Version None)
Quarter: 2012Q1

REPORT INFORMATION
  Report Type: 
  Country: None (occurrence: None)
  Receive Date: 20120221
  Receipt Date: 20120209
  Transmission Date: 20120608
  Serious: Yes (Other)
  Sender: FDA-Public Use
  Company Number: US-PERRIGO-12US001193

PATIENT
  Sex: Male
  Weight: 90.249 kg

DRUGS (4)
  1. HEMORRHOIDAL CRM 944 [Suspect]
     Indication: HAEMORRHOIDS
     Dosage: SINGLE
     Route: 054
     Dates: start: 20120209, end: 20120209
  2. OXYCODONE HCL [Concomitant]
     Indication: PAIN
     Dosage: UNK
     Route: 065
     Dates: start: 20100101
  3. LORAZEPAM [Concomitant]
     Indication: ANXIETY
     Dosage: UNK
     Route: 065
  4. HEMORRHOIDAL CRM 944 [Suspect]
     Dosage: PRN
     Route: 054
     Dates: start: 20100101

REACTIONS (10)
  - RECTAL FISSURE [None]
  - FOREIGN BODY [None]
  - RECTAL ULCER [None]
  - PROCTALGIA [None]
  - BURNING SENSATION [None]
  - ANAL PRURITUS [None]
  - GASTROINTESTINAL INJURY [None]
  - ANORECTAL INFECTION [None]
  - TINNITUS [None]
  - NERVE INJURY [None]
